FAERS Safety Report 5480747-9 (Version None)
Quarter: 2007Q4

REPORT INFORMATION
  Report Type: 
  Country: None (occurrence: None)
  Receive Date: 20071009
  Receipt Date: 20070927
  Transmission Date: 20080405
  Serious: Yes (Life-Threatening, Hospitalization, Other)
  Sender: FDA-Public Use
  Company Number: US-PFIZER INC-2007005792

PATIENT
  Sex: Male
  Weight: 90.7 kg

DRUGS (18)
  1. CHANTIX [Suspect]
     Indication: SMOKING CESSATION THERAPY
     Route: 048
     Dates: start: 20061231, end: 20070116
  2. LOPID [Concomitant]
  3. PAXIL [Concomitant]
  4. TRAZODONE HCL [Concomitant]
  5. COMBIVENT [Concomitant]
  6. VYTORIN [Concomitant]
     Dosage: TEXT:10-40MG
  7. ALLOPURINOL [Concomitant]
  8. CLONIDINE [Concomitant]
  9. FELODIPINE [Concomitant]
  10. FUROSEMIDE [Concomitant]
  11. PREDNISONE [Concomitant]
  12. RANITIDINE HCL [Concomitant]
  13. PROCRIT [Concomitant]
  14. TEMAZEPAM [Concomitant]
  15. ECOTRIN [Concomitant]
  16. PRESERVISION SOFTGELS WITH LUTEIN [Concomitant]
  17. MULTIVITAMINS WITH MINERALS [Concomitant]
  18. IRON [Concomitant]

REACTIONS (21)
  - ANAEMIA [None]
  - BLOOD CHOLESTEROL INCREASED [None]
  - BLOOD POTASSIUM INCREASED [None]
  - BLOOD TRIGLYCERIDES INCREASED [None]
  - CARDIAC FAILURE CONGESTIVE [None]
  - CELLULITIS [None]
  - GLOMERULONEPHRITIS [None]
  - HYPERTENSION [None]
  - JOINT SWELLING [None]
  - NAUSEA [None]
  - NEPHROSCLEROSIS [None]
  - OEDEMA [None]
  - OEDEMA PERIPHERAL [None]
  - RASH [None]
  - RED BLOOD CELL SEDIMENTATION RATE INCREASED [None]
  - RED BLOOD CELLS URINE [None]
  - RENAL FAILURE [None]
  - RENAL TUBULAR NECROSIS [None]
  - SCRATCH [None]
  - TACHYCARDIA [None]
  - WHITE BLOOD CELLS URINE POSITIVE [None]
